FAERS Safety Report 19119463 (Version 2)
Quarter: 2021Q2

REPORT INFORMATION
  Report Type: Report from Study
  Country: None (occurrence: US)
  Receive Date: 20210411
  Receipt Date: 20210527
  Transmission Date: 20210717
  Serious: Yes (Other)
  Sender: FDA-Public Use
  Company Number: US-ABBVIE-21K-163-3836708-00

PATIENT
  Sex: Female
  Weight: 83.99 kg

DRUGS (9)
  1. ALLEGRA [Concomitant]
     Active Substance: FEXOFENADINE HYDROCHLORIDE
     Indication: HYPERSENSITIVITY
  2. HYDROCHLOROTHIAZIDE. [Concomitant]
     Active Substance: HYDROCHLOROTHIAZIDE
     Indication: BLOOD PRESSURE MEASUREMENT
  3. HYDROCHLOROTHIAZIDE. [Concomitant]
     Active Substance: HYDROCHLOROTHIAZIDE
     Indication: DIURETIC THERAPY
  4. PREDNISONE. [Concomitant]
     Active Substance: PREDNISONE
     Indication: EYE INFLAMMATION
  5. VITAMIN D3 [Concomitant]
     Active Substance: CHOLECALCIFEROL
     Indication: VITAMIN SUPPLEMENTATION
  6. HUMIRA [Suspect]
     Active Substance: ADALIMUMAB
     Indication: PSORIATIC ARTHROPATHY
     Route: 058
     Dates: start: 2013
  7. GINGER. [Concomitant]
     Active Substance: GINGER
     Indication: PHYTOTHERAPY
  8. TURMERIC [Concomitant]
     Active Substance: HERBALS\TURMERIC
     Indication: PHYTOTHERAPY
  9. MODERNA COVID?19 VACCINE [Concomitant]
     Active Substance: CX-024414
     Indication: COVID-19 IMMUNISATION
     Dosage: MODERNA
     Route: 030
     Dates: start: 20210401, end: 20210401

REACTIONS (12)
  - Immune system disorder [Not Recovered/Not Resolved]
  - Blindness unilateral [Not Recovered/Not Resolved]
  - HLA-B*27 positive [Not Recovered/Not Resolved]
  - Peripheral swelling [Recovering/Resolving]
  - Fatigue [Not Recovered/Not Resolved]
  - Pain in extremity [Recovering/Resolving]
  - Glaucoma [Not Recovered/Not Resolved]
  - Intraocular pressure increased [Unknown]
  - Swelling face [Not Recovered/Not Resolved]
  - Device issue [Recovered/Resolved]
  - Uveitis [Recovered/Resolved]
  - Uveitis [Not Recovered/Not Resolved]

NARRATIVE: CASE EVENT DATE: 2013
